FAERS Safety Report 8586804-2 (Version None)
Quarter: 2012Q3

REPORT INFORMATION
  Report Type: 
  Country: None (occurrence: None)
  Receive Date: 20120810
  Receipt Date: 20120717
  Transmission Date: 20120928
  Serious: Yes (Hospitalization)
  Sender: FDA-Public Use
  Company Number: JP-009507513-1207JPN000068

PATIENT

DRUGS (16)
  1. REBETOL [Suspect]
     Dosage: 400 MG, UNK
     Route: 048
     Dates: start: 20120501, end: 20120508
  2. URSO 250 [Concomitant]
     Indication: HEPATITIS C
     Dosage: 600 MG, ONCE
     Route: 048
  3. COSPANON [Concomitant]
     Route: 048
  4. ACETAMINOPHEN [Concomitant]
     Dosage: 500MG/DAY, AS NEEDED
     Route: 048
     Dates: start: 20120326
  5. COSPANON [Concomitant]
     Route: 048
  6. REBETOL [Suspect]
     Dosage: 200 MG, UNK
     Route: 048
     Dates: start: 20120509
  7. PEG-INTRON [Suspect]
     Indication: HEPATITIS C
     Dosage: 1.5MCG/KG/WEEK
     Route: 058
     Dates: start: 20120326
  8. [THERAPY UNSPECIFIED] [Concomitant]
     Dosage: 500MG/DAY, AS NEEDED
     Route: 048
     Dates: start: 20120326
  9. PRIMPERAN TAB [Concomitant]
     Dosage: 5MG/DAY, AS NEEDED
     Route: 048
  10. TELAVIC [Suspect]
     Indication: HEPATITIS C
     Dosage: 2250 MG, ONCE
     Route: 048
     Dates: start: 20120326, end: 20120415
  11. URSO 250 [Concomitant]
     Route: 048
  12. REBETOL [Suspect]
     Indication: HEPATITIS C
     Dosage: 800 MG, ONCE
     Route: 048
     Dates: start: 20120326, end: 20120415
  13. REBETOL [Suspect]
     Dosage: 600 MG, UNK
     Route: 048
     Dates: start: 20120416, end: 20120430
  14. SEROQUEL [Concomitant]
     Dosage: 25MG/DAY, AS NEEDED
     Route: 048
  15. TELAVIC [Suspect]
     Route: 048
     Dates: start: 20120416, end: 20120617
  16. SEROQUEL [Concomitant]
     Indication: INSOMNIA
     Dosage: 25 MG, ONCE
     Route: 048
     Dates: start: 20120401

REACTIONS (1)
  - PANCREATITIS ACUTE [None]
